FAERS Safety Report 14834685 (Version 1)
Quarter: 2018Q2

REPORT INFORMATION
  Report Type: Spontaneous
  Country: FR (occurrence: FR)
  Receive Date: 20180501
  Receipt Date: 20180501
  Transmission Date: 20180711
  Serious: Yes (Life-Threatening)
  Sender: FDA-Public Use
  Company Number: FR-009507513-1805FRA000335

PATIENT
  Age: 35 Year
  Sex: Female

DRUGS (2)
  1. MONTELUKAST [Suspect]
     Active Substance: MONTELUKAST SODIUM
     Indication: ASTHMA
     Dosage: 1 DOSAGE FORM; DAILY IN THE EVENING
     Route: 048
     Dates: start: 2018
  2. LEVOTHYROXINE SODIUM. [Concomitant]
     Active Substance: LEVOTHYROXINE SODIUM
     Dosage: 1 DOSAGE FORM IN THE MORNING

REACTIONS (9)
  - Speech disorder [Not Recovered/Not Resolved]
  - Hallucination [Unknown]
  - Aggression [Not Recovered/Not Resolved]
  - Confusional state [Unknown]
  - Somnolence [Unknown]
  - Disturbance in attention [Unknown]
  - Tremor [Unknown]
  - Pyrexia [Not Recovered/Not Resolved]
  - Formication [Unknown]

NARRATIVE: CASE EVENT DATE: 2018
